FAERS Safety Report 10686148 (Version 3)
Quarter: 2015Q1

REPORT INFORMATION
  Report Type: Report from Study
  Country: CA (occurrence: CA)
  Receive Date: 20141231
  Receipt Date: 20150108
  Transmission Date: 20150720
  Serious: Yes (Life-Threatening, Disabling, Other)
  Sender: FDA-Public Use
  Company Number: CA-ABBVIE-14K-028-1314888-00

PATIENT
  Age: 60 Year
  Sex: Male
  Weight: 127.12 kg

DRUGS (1)
  1. HUMIRA [Suspect]
     Active Substance: ADALIMUMAB
     Indication: PSORIASIS
     Route: 058
     Dates: start: 20110112, end: 20140920

REACTIONS (8)
  - Dysphagia [Unknown]
  - Tonsil cancer [Unknown]
  - Tooth abscess [Unknown]
  - Basosquamous carcinoma [Unknown]
  - Oropharyngeal pain [Not Recovered/Not Resolved]
  - Pharyngeal oedema [Unknown]
  - Throat cancer [Not Recovered/Not Resolved]
  - Pharyngitis [Not Recovered/Not Resolved]

NARRATIVE: CASE EVENT DATE: 201409
